FAERS Safety Report 6971765-X (Version None)
Quarter: 2010Q3

REPORT INFORMATION
  Report Type: 
  Country: None (occurrence: None)
  Receive Date: 20100908
  Receipt Date: 20100902
  Transmission Date: 20110219
  Serious: Yes (Death)
  Sender: FDA-Public Use
  Company Number: JP-ABBOTT-10P-087-0665912-00

PATIENT
  Sex: Male

DRUGS (3)
  1. NORVIR [Suspect]
     Indication: HIV INFECTION
     Route: 048
     Dates: start: 20060403, end: 20090828
  2. REYATAZ [Concomitant]
     Indication: HIV INFECTION
     Dosage: 300 MG, DAILY
     Route: 048
     Dates: start: 20060403, end: 20090828
  3. TRUVADA [Concomitant]
     Indication: HIV INFECTION
     Dosage: 1 TABLET, DAILY
     Route: 048
     Dates: start: 20061219, end: 20090828

REACTIONS (8)
  - ALTERED STATE OF CONSCIOUSNESS [None]
  - EYE MOVEMENT DISORDER [None]
  - EYELID PTOSIS [None]
  - HEADACHE [None]
  - HYPERTRIGLYCERIDAEMIA [None]
  - LYMPHADENOPATHY [None]
  - LYMPHOMA [None]
  - TESTICULAR SWELLING [None]
